FAERS Safety Report 16785907 (Version 1)
Quarter: 2019Q3

REPORT INFORMATION
  Report Type: Spontaneous
  Country: AU (occurrence: AU)
  Receive Date: 20190909
  Receipt Date: 20190909
  Transmission Date: 20191005
  Serious: Yes (Other)
  Sender: FDA-Public Use
  Company Number: AU-MYLANLABS-2019M1084045

PATIENT
  Age: 52 Year
  Sex: Male

DRUGS (4)
  1. CLOZAPINE. [Suspect]
     Active Substance: CLOZAPINE
     Indication: PRODUCT USED FOR UNKNOWN INDICATION
     Dosage: UNK
  2. AMISULPRIDE [Concomitant]
     Active Substance: AMISULPRIDE
  3. CLOPINE [Suspect]
     Active Substance: CLOZAPINE
     Indication: PRODUCT USED FOR UNKNOWN INDICATION
     Dosage: UNK
  4. SERTRALINE [Concomitant]
     Active Substance: SERTRALINE HYDROCHLORIDE

REACTIONS (19)
  - Hyperphagia [Unknown]
  - Pain [Unknown]
  - Self-injurious ideation [Unknown]
  - Abnormal behaviour [Unknown]
  - Aggression [Unknown]
  - Suicidal ideation [Unknown]
  - Paranoia [Unknown]
  - Restlessness [Unknown]
  - Hallucination, auditory [Unknown]
  - Hyperhidrosis [Unknown]
  - Asocial behaviour [Unknown]
  - Crying [Unknown]
  - Depressed mood [Unknown]
  - Panic reaction [Unknown]
  - Disturbance in attention [Unknown]
  - Insomnia [Unknown]
  - Poor quality sleep [Unknown]
  - Hallucination, visual [Unknown]
  - Nervousness [Unknown]
